FAERS Safety Report 8668923 (Version 2)
Quarter: 2012Q4

REPORT INFORMATION
  Report Type: 
  Country: BR (occurrence: BR)
  Receive Date: 20120717
  Receipt Date: 20120924
  Transmission Date: 20130627
  Serious: Yes (Other)
  Sender: FDA-Public Use
  Company Number: PHHY2011BR28965

PATIENT
  Age: 55 Year
  Sex: Female
  Weight: 75 kg

DRUGS (6)
  1. TRILEPTAL [Suspect]
     Indication: EPILEPSY
     Dosage: 600 mg, TID
     Route: 048
     Dates: start: 2004
  2. TRILEPTAL [Suspect]
     Indication: PETIT MAL EPILEPSY
     Dosage: 300 mg, 5QD
     Route: 048
     Dates: end: 201201
  3. GARDENAL [Concomitant]
     Indication: EPILEPSY
     Dosage: 100 mg daily
     Route: 048
  4. GARDENAL [Concomitant]
     Dosage: 75 mg, daily
  5. GARDENAL [Concomitant]
     Dosage: 50 mg, daily
  6. GARDENAL [Concomitant]
     Dosage: 100 mg,daily

REACTIONS (19)
  - Haemorrhage [Not Recovered/Not Resolved]
  - Fall [Not Recovered/Not Resolved]
  - Uterine leiomyoma [Unknown]
  - Weight increased [Not Recovered/Not Resolved]
  - Pigmentation disorder [Not Recovered/Not Resolved]
  - Feeling hot [Not Recovered/Not Resolved]
  - Oedema peripheral [Not Recovered/Not Resolved]
  - Fluid retention [Not Recovered/Not Resolved]
  - Visual impairment [Unknown]
  - Tooth fracture [Not Recovered/Not Resolved]
  - Tooth discolouration [Not Recovered/Not Resolved]
  - Tooth disorder [Not Recovered/Not Resolved]
  - Confusional state [Unknown]
  - Somnolence [Recovering/Resolving]
  - Hypersensitivity [Not Recovered/Not Resolved]
  - Pruritus [Not Recovered/Not Resolved]
  - Alopecia [Not Recovered/Not Resolved]
  - Petit mal epilepsy [Unknown]
  - Epilepsy [Unknown]
